FAERS Safety Report 18927935 (Version 2)
Quarter: 2021Q2

REPORT INFORMATION
  Report Type: Spontaneous
  Country: US (occurrence: US)
  Receive Date: 20210223
  Receipt Date: 20210428
  Transmission Date: 20210717
  Serious: Yes (Other)
  Sender: FDA-Public Use
  Company Number: US-BAYER-2021-066978

PATIENT
  Age: 52 Year
  Sex: Male

DRUGS (1)
  1. KOGENATE FS [Suspect]
     Active Substance: ANTIHEMOPHILIC FACTOR, HUMAN RECOMBINANT
     Indication: FACTOR VIII DEFICIENCY
     Dosage: 3133 U, QD
     Route: 042
     Dates: start: 20201208

REACTIONS (3)
  - Haemarthrosis [None]
  - Haemorrhage [None]
  - Surgery [None]

NARRATIVE: CASE EVENT DATE: 20210210
